FAERS Safety Report 11829962 (Version 3)
Quarter: 2016Q2

REPORT INFORMATION
  Report Type: Spontaneous
  Country: JP (occurrence: JP)
  Receive Date: 20151213
  Receipt Date: 20160404
  Transmission Date: 20160815
  Serious: Yes (Death, Life-Threatening, Hospitalization, Other)
  Sender: FDA-Public Use
  Company Number: JP-ASTRAZENECA-2015SF24679

PATIENT
  Age: 82 Year
  Sex: Female

DRUGS (13)
  1. ITOROL [Concomitant]
     Active Substance: ISOSORBIDE MONONITRATE
     Indication: MYOCARDIAL ISCHAEMIA
     Route: 048
     Dates: start: 20050820
  2. ALDACTONE A [Concomitant]
     Active Substance: SPIRONOLACTONE
     Indication: CARDIAC FAILURE CONGESTIVE
     Route: 048
     Dates: start: 20100419
  3. SAMSCA [Suspect]
     Active Substance: TOLVAPTAN
     Indication: CARDIAC FAILURE CONGESTIVE
     Route: 048
     Dates: start: 20151201
  4. ALDACTONE A [Concomitant]
     Active Substance: SPIRONOLACTONE
     Indication: CARDIAC FAILURE CHRONIC
     Route: 048
     Dates: start: 20100419
  5. LENDORMIN D [Concomitant]
     Active Substance: BROTIZOLAM
     Indication: INSOMNIA
     Route: 048
     Dates: start: 20151126
  6. MEROPENEM. [Suspect]
     Active Substance: MEROPENEM
     Indication: PNEUMONIA
     Route: 042
     Dates: start: 20151204
  7. NITOROL [Concomitant]
     Active Substance: ISOSORBIDE DINITRATE
     Route: 048
  8. LASIX [Concomitant]
     Active Substance: FUROSEMIDE
     Indication: CARDIAC FAILURE CHRONIC
     Route: 048
     Dates: start: 20050820
  9. GASTER [Concomitant]
     Active Substance: FAMOTIDINE
     Indication: CHRONIC GASTRITIS
     Route: 048
     Dates: start: 20050820
  10. SIGMART [Concomitant]
     Active Substance: NICORANDIL
     Indication: MYOCARDIAL ISCHAEMIA
     Route: 048
     Dates: start: 20050825
  11. LASIX [Concomitant]
     Active Substance: FUROSEMIDE
     Indication: CARDIAC FAILURE CONGESTIVE
     Route: 048
     Dates: start: 20050820
  12. BONALON [Concomitant]
     Active Substance: ALENDRONATE SODIUM
     Indication: OSTEOPOROSIS
     Route: 048
     Dates: start: 20090330
  13. ALOSITOL [Concomitant]
     Active Substance: ALLOPURINOL
     Indication: HYPERURICAEMIA
     Route: 048
     Dates: start: 20110113

REACTIONS (5)
  - Blood pressure decreased [Unknown]
  - Hepatitis fulminant [Unknown]
  - Aortic stenosis [Fatal]
  - Renal failure [Unknown]
  - Platelet count decreased [Unknown]

NARRATIVE: CASE EVENT DATE: 201512
